FAERS Safety Report 22249219 (Version 1)
Quarter: 2023Q2

REPORT INFORMATION
  Report Type: Spontaneous
  Country: US (occurrence: None)
  Receive Date: 20230421
  Receipt Date: 20230421
  Transmission Date: 20230722
  Serious: Yes (Hospitalization)
  Sender: FDA-Public Use
  Company Number: None

PATIENT
  Age: 74 Year
  Sex: Male

DRUGS (2)
  1. KETOROLAC [Suspect]
     Active Substance: KETOROLAC TROMETHAMINE
     Indication: Pain
     Route: 048
     Dates: start: 202304, end: 20230403
  2. IMBRUVICA [Concomitant]
     Active Substance: IBRUTINIB

REACTIONS (1)
  - Renal failure [None]

NARRATIVE: CASE EVENT DATE: 20230403
